FAERS Safety Report 7911752-8 (Version None)
Quarter: 2011Q4

REPORT INFORMATION
  Report Type: 
  Country: None (occurrence: None)
  Receive Date: 20111114
  Receipt Date: 20111114
  Transmission Date: 20120403
  Serious: Yes (Other)
  Sender: FDA-Public Use
  Company Number: None

PATIENT
  Age: 78 Year
  Sex: Male

DRUGS (1)
  1. HYDRALAZINE HCL [Suspect]

REACTIONS (4)
  - CHILLS [None]
  - TREMOR [None]
  - RESPIRATORY RATE INCREASED [None]
  - CHEST PAIN [None]
